FAERS Safety Report 8415087-9 (Version None)
Quarter: 2012Q2

REPORT INFORMATION
  Report Type: 
  Country: None (occurrence: None)
  Receive Date: 20120530
  Receipt Date: 20120518
  Transmission Date: 20120825
  Serious: Yes (Other)
  Sender: FDA-Public Use
  Company Number: 2012SP027015

PATIENT
  Sex: Male

DRUGS (2)
  1. RIBAVIRIN [Suspect]
     Indication: HEPATITIS C
     Dates: start: 20060224, end: 20060421
  2. INTERFERON [Suspect]
     Indication: HEPATITIS C

REACTIONS (4)
  - DRUG EFFECT DECREASED [None]
  - HEPATITIS C [None]
  - VIRAL LOAD INCREASED [None]
  - CONDITION AGGRAVATED [None]
